FAERS Safety Report 5120097-3 (Version None)
Quarter: 2006Q4

REPORT INFORMATION
  Report Type: 
  Country: None (occurrence: None)
  Receive Date: 20061004
  Receipt Date: 20060928
  Transmission Date: 20070319
  Serious: Yes (Other)
  Sender: FDA-Public Use
  Company Number: JP-SP-2006-02564

PATIENT
  Age: 66 Year
  Sex: Male

DRUGS (3)
  1. IMMUCYST [Suspect]
     Indication: CARCINOMA IN SITU OF BLADDER
     Route: 043
     Dates: start: 20060222, end: 20060412
  2. PROPIVERINE HYDROCHLORIDE [Concomitant]
     Dates: start: 20060315, end: 20060415
  3. TAMSULOSIN HCL [Concomitant]
     Dates: start: 20060315, end: 20060415

REACTIONS (2)
  - POLLAKIURIA [None]
  - TACHYCARDIA [None]
